FAERS Safety Report 4444750-X (Version None)
Quarter: 2004Q3

REPORT INFORMATION
  Report Type: 
  Country: None (occurrence: None)
  Receive Date: 20040909
  Receipt Date: 20040831
  Transmission Date: 20050211
  Serious: Yes (Other)
  Sender: FDA-Public Use
  Company Number: PHFR2004GB03362

PATIENT
  Age: 47 Year
  Sex: Female

DRUGS (4)
  1. TEGRETOL [Suspect]
     Indication: EPILEPSY
     Dosage: 200 MG, BID
     Route: 048
     Dates: start: 19991011
  2. MEPTID [Suspect]
     Indication: PAIN
     Dosage: 200MG/DAY
     Route: 048
     Dates: start: 20040809, end: 20040810
  3. IBUPROFEN [Concomitant]
     Indication: PAIN
     Dosage: 400 MG, TID
     Route: 048
     Dates: start: 20021021
  4. BECLOMETHASONE DIPROPIONATE [Concomitant]
     Indication: RHINITIS
     Dosage: 400UG/DAY
     Dates: start: 20020108

REACTIONS (2)
  - DRUG INTERACTION [None]
  - EPILEPSY [None]
